FAERS Safety Report 6803114-1 (Version None)
Quarter: 2010Q2

REPORT INFORMATION
  Report Type: 
  Country: None (occurrence: None)
  Receive Date: 20100628
  Receipt Date: 20100617
  Transmission Date: 20101027
  Serious: Yes (Hospitalization)
  Sender: FDA-Public Use
  Company Number: A0833474A

PATIENT
  Age: 49 Year
  Sex: Female
  Weight: 122.7 kg

DRUGS (9)
  1. AVANDIA [Suspect]
     Indication: DIABETES MELLITUS
     Dosage: 8MG PER DAY
     Route: 048
     Dates: start: 20041001, end: 20080101
  2. HYZAAR [Concomitant]
  3. GLYBURIDE [Concomitant]
  4. HUMULIN R [Concomitant]
  5. TRAZODONE HYDROCHLORIDE [Concomitant]
  6. LEXAPRO [Concomitant]
  7. ALDACTONE [Concomitant]
  8. ALBUTEROL [Concomitant]
  9. ADVAIR DISKUS 100/50 [Concomitant]

REACTIONS (4)
  - CARDIAC FAILURE CONGESTIVE [None]
  - HEPATIC FAILURE [None]
  - MACULAR OEDEMA [None]
  - PULMONARY ARTERIAL HYPERTENSION [None]
